FAERS Safety Report 25036398 (Version 1)
Quarter: 2025Q1

REPORT INFORMATION
  Report Type: Report from Study
  Country: CN (occurrence: CN)
  Receive Date: 20250304
  Receipt Date: 20250304
  Transmission Date: 20250409
  Serious: Yes (Other)
  Sender: RANBAXY
  Company Number: CN-SUN PHARMACEUTICAL INDUSTRIES LTD-2025R1-496520

PATIENT
  Age: 20 Year
  Sex: Female

DRUGS (9)
  1. GEMCITABINE [Suspect]
     Active Substance: GEMCITABINE
     Indication: T-cell lymphoma
     Route: 065
  2. DEXAMETHASONE [Suspect]
     Active Substance: DEXAMETHASONE
     Indication: T-cell lymphoma
     Route: 065
  3. DEXAMETHASONE [Suspect]
     Active Substance: DEXAMETHASONE
     Indication: Panniculitis
  4. CISPLATIN [Suspect]
     Active Substance: CISPLATIN
     Indication: Panniculitis
     Route: 065
  5. CISPLATIN [Suspect]
     Active Substance: CISPLATIN
     Indication: T-cell lymphoma
  6. METHOTREXATE [Suspect]
     Active Substance: METHOTREXATE
     Indication: T-cell lymphoma
     Route: 065
  7. METHOTREXATE [Suspect]
     Active Substance: METHOTREXATE
     Indication: Panniculitis
  8. PEGASPARGASE [Suspect]
     Active Substance: PEGASPARGASE
     Indication: Panniculitis
     Route: 065
  9. PEGASPARGASE [Suspect]
     Active Substance: PEGASPARGASE
     Indication: T-cell lymphoma

REACTIONS (1)
  - Therapy partial responder [Unknown]
